FAERS Safety Report 25293431 (Version 1)
Quarter: 2025Q2

REPORT INFORMATION
  Report Type: Spontaneous
  Country: US (occurrence: US)
  Receive Date: 20250510
  Receipt Date: 20250510
  Transmission Date: 20250716
  Serious: No
  Sender: SANOFI AVENTIS
  Company Number: US-SA-2025SA125766

PATIENT
  Age: 56 Year
  Sex: Male

DRUGS (1)
  1. REZUROCK [Suspect]
     Active Substance: BELUMOSUDIL
     Indication: Follicular lymphoma stage III
     Dosage: 200 MG, QD
     Route: 048
     Dates: start: 20250404

REACTIONS (3)
  - Nasopharyngitis [Unknown]
  - Pyrexia [Unknown]
  - Product use in unapproved indication [Unknown]

NARRATIVE: CASE EVENT DATE: 20250404
